FAERS Safety Report 10232701 (Version 1)
Quarter: 2014Q2

REPORT INFORMATION
  Report Type: Spontaneous
  Country: US (occurrence: None)
  Receive Date: 20140506
  Receipt Date: 20140506
  Transmission Date: 20141212
  Serious: Yes (Hospitalization)
  Sender: FDA-Public Use
  Company Number: 1228795

PATIENT
  Age: 71 Year
  Sex: Male
  Weight: 73.4 kg

DRUGS (10)
  1. BEVACIZUMAB (BEVACIZUMAB) [Suspect]
     Indication: PRODUCT USED FOR UNKNOWN INDICATION
     Dosage: (15 MG/KG, 1 IN 3 WK), INTRAVENOUS (NOT OTHERWISE SPECIFIED)
     Route: 042
     Dates: start: 20121116, end: 20130118
  2. CARBOPLATIN (CARBOPLATIN) [Suspect]
     Indication: PRODUCT USED FOR UNKNOWN INDICATION
     Dosage: (1 IN 3 WK)
     Route: 042
     Dates: start: 20121116, end: 20130118
  3. PEMETREXED (PEMETREXED DISODIUM) [Concomitant]
  4. NORVASC (AMLODIPINE BESILATE) [Concomitant]
  5. ASPIRIN (ASPIRIN) [Concomitant]
  6. DEXAMETHASONE (DEXAMETHASONE) [Concomitant]
  7. TOPROL XL (METOPROLOL SUCCINATE) (100 MILLIGRAM) (METOPROLOL SUCCINATE) [Concomitant]
  8. ZOFRAN (ONDANSETRON HYDROCHLORIDE, ONDANSETRON) [Concomitant]
  9. COMPAZINE (PROCHLORPERAZINE) [Concomitant]
  10. VERAPAMIL (VERAPAMIL) [Concomitant]

REACTIONS (1)
  - Hypotension [None]
